FAERS Safety Report 20430190 (Version 1)
Quarter: 2022Q1

REPORT INFORMATION
  Report Type: Report from Study
  Country: FR (occurrence: FR)
  Receive Date: 20220204
  Receipt Date: 20220204
  Transmission Date: 20220424
  Serious: Yes (Hospitalization)
  Sender: FDA-Public Use
  Company Number: FR-SERVIER-S19014107

PATIENT

DRUGS (5)
  1. ONCASPAR [Suspect]
     Active Substance: PEGASPARGASE
     Indication: Acute lymphocytic leukaemia
     Dosage: 787.5 IU, QD, (1250 IU/M2), ON DAY 4
     Route: 042
     Dates: start: 20190916, end: 20190916
  2. DOXORUBICIN [Suspect]
     Active Substance: DOXORUBICIN
     Indication: Acute lymphocytic leukaemia
     Dosage: 15.6 MG, ON D1 , D8 AND D15
     Route: 042
     Dates: start: 20190913, end: 20190927
  3. VINCRISTINE SULFATE [Suspect]
     Active Substance: VINCRISTINE SULFATE
     Indication: Acute lymphocytic leukaemia
     Dosage: 0.94 MG, ON D1, D8 AND D15
     Route: 042
     Dates: start: 20190913, end: 20190927
  4. DEXAMETHASONE PHOSPHATE [Suspect]
     Active Substance: DEXAMETHASONE PHOSPHATE
     Indication: Acute lymphocytic leukaemia
     Dosage: 6 MG, QD, D8, D14, D29, D42
     Route: 048
     Dates: start: 20190918
  5. TN UNSPECIFIED [Concomitant]
     Indication: Acute lymphocytic leukaemia
     Dosage: 12 MG, ON D4 AND D31
     Route: 037
     Dates: start: 20190916

REACTIONS (2)
  - Pancreatitis [Recovered/Resolved]
  - Gastrointestinal infection [Not Recovered/Not Resolved]

NARRATIVE: CASE EVENT DATE: 20190927
